FAERS Safety Report 6124536-0 (Version None)
Quarter: 2009Q1

REPORT INFORMATION
  Report Type: 
  Country: None (occurrence: None)
  Receive Date: 20090317
  Receipt Date: 20090317
  Transmission Date: 20090719
  Serious: Yes (Hospitalization)
  Sender: FDA-Public Use
  Company Number: None

PATIENT
  Age: 86 Year
  Sex: Female
  Weight: 60.3284 kg

DRUGS (1)
  1. CELEBREX [Suspect]
     Indication: ARTHRITIS
     Dosage: 200MG OD PO
     Route: 048
     Dates: start: 20090314, end: 20090314

REACTIONS (3)
  - DYSARTHRIA [None]
  - FACIAL PALSY [None]
  - MONOPARESIS [None]
